FAERS Safety Report 23697173 (Version 1)
Quarter: 2024Q2

REPORT INFORMATION
  Report Type: Spontaneous
  Country: AR (occurrence: AR)
  Receive Date: 20240402
  Receipt Date: 20240402
  Transmission Date: 20240716
  Serious: Yes (Other)
  Sender: FDA-Public Use
  Company Number: AR-002147023-NVSC2024AR068381

PATIENT
  Age: 66 Year
  Sex: Female

DRUGS (1)
  1. EVEROLIMUS [Suspect]
     Active Substance: EVEROLIMUS
     Indication: Breast cancer metastatic
     Dosage: 25 MG, QD
     Route: 065
     Dates: start: 20230927

REACTIONS (6)
  - Feeding disorder [Unknown]
  - Weight decreased [Unknown]
  - Glossodynia [Unknown]
  - Throat lesion [Unknown]
  - Palate injury [Unknown]
  - Malaise [Unknown]
